FAERS Safety Report 6297114-0 (Version None)
Quarter: 2009Q3

REPORT INFORMATION
  Report Type: 
  Country: None (occurrence: None)
  Receive Date: 20090724
  Receipt Date: 20090313
  Transmission Date: 20100115
  Serious: Yes (Hospitalization)
  Sender: FDA-Public Use
  Company Number: 2008BI028021

PATIENT
  Age: 58 Year
  Sex: Female

DRUGS (4)
  1. TYSABRI [Suspect]
     Indication: MULTIPLE SCLEROSIS
     Dosage: 300 MG;QM;IV
     Route: 042
     Dates: start: 20080820, end: 20081015
  2. ATROVENT [Concomitant]
  3. ALBUTEROL [Concomitant]
  4. ADVAIR HFA [Concomitant]

REACTIONS (4)
  - BLOOD POTASSIUM DECREASED [None]
  - CATHETER SITE PAIN [None]
  - ELECTROCARDIOGRAM ABNORMAL [None]
  - HYPERSENSITIVITY [None]
